FAERS Safety Report 5407257-9 (Version None)
Quarter: 2007Q3

REPORT INFORMATION
  Report Type: 
  Country: None (occurrence: None)
  Receive Date: 20070807
  Receipt Date: 20070803
  Transmission Date: 20080115
  Serious: Yes (Hospitalization)
  Sender: FDA-Public Use
  Company Number: B0480867A

PATIENT
  Age: 61 Year
  Sex: Female
  Weight: 79 kg

DRUGS (10)
  1. ARIXTRA [Suspect]
     Indication: THROMBOSIS PROPHYLAXIS
     Dosage: 2.5MG PER DAY
     Route: 058
     Dates: start: 20070707, end: 20070716
  2. ADEFURONIC [Concomitant]
     Route: 048
     Dates: start: 20070705, end: 20070723
  3. DASEN [Concomitant]
     Route: 048
     Dates: start: 20070705, end: 20070723
  4. MUCOSTA [Concomitant]
     Route: 048
     Dates: start: 20070705, end: 20070723
  5. FLUMARIN [Concomitant]
     Indication: INFECTION PROPHYLAXIS
     Dosage: 2G PER DAY
     Route: 042
     Dates: start: 20070704, end: 20070713
  6. FAROPENEM SODIUM [Concomitant]
     Route: 048
  7. UNASYN [Concomitant]
     Indication: INFECTION PROPHYLAXIS
     Dosage: 3G PER DAY
     Route: 042
     Dates: start: 20070713, end: 20070716
  8. MINOCYCLINE HCL [Concomitant]
     Indication: INFECTION PROPHYLAXIS
     Dosage: 200MG PER DAY
     Route: 048
     Dates: start: 20070713, end: 20070717
  9. FLOMOX [Concomitant]
     Indication: INFECTION PROPHYLAXIS
     Route: 048
     Dates: start: 20070707, end: 20070713
  10. MYSLEE [Concomitant]
     Route: 048
     Dates: start: 20070707, end: 20070718

REACTIONS (6)
  - C-REACTIVE PROTEIN INCREASED [None]
  - CHILLS [None]
  - LEUKOCYTOSIS [None]
  - PROCEDURAL SITE REACTION [None]
  - PYREXIA [None]
  - WHITE BLOOD CELL COUNT INCREASED [None]
